FAERS Safety Report 19465324 (Version 1)
Quarter: 2021Q2

REPORT INFORMATION
  Report Type: Spontaneous
  Country: CA (occurrence: CA)
  Receive Date: 20210624
  Receipt Date: 20210624
  Transmission Date: 20210717
  Serious: Yes (Hospitalization)
  Sender: FDA-Public Use
  Company Number: CA-JACOBUS PHARMACEUTICAL COMPANY, INC.-2113096

PATIENT
  Age: 66 Year
  Sex: Female

DRUGS (1)
  1. RUZURGI [Suspect]
     Active Substance: AMIFAMPRIDINE
     Indication: MYASTHENIC SYNDROME
     Route: 048

REACTIONS (3)
  - Epistaxis [Unknown]
  - Cardiac failure congestive [Unknown]
  - Disease complication [Not Recovered/Not Resolved]

NARRATIVE: CASE EVENT DATE: 20210606
